FAERS Safety Report 9655519 (Version 3)
Quarter: 2013Q4

REPORT INFORMATION
  Report Type: Spontaneous
  Country: US (occurrence: US)
  Receive Date: 20131029
  Receipt Date: 20131226
  Transmission Date: 20140711
  Serious: Yes (Hospitalization, Other)
  Sender: FDA-Public Use
  Company Number: US-RB-059988-13

PATIENT
  Age: 42 Year
  Sex: Female

DRUGS (6)
  1. SUBOXONE TABLET [Suspect]
     Indication: ALCOHOLISM
     Route: 060
     Dates: start: 20080404, end: 2012
  2. BUPRENORPHINE GENERIC [Suspect]
     Indication: ALCOHOLISM
     Route: 060
     Dates: start: 2012
  3. ZOLADEX [Suspect]
     Indication: ANTIOESTROGEN THERAPY
     Dosage: THE PATIENT DID NOT KNOW MEASURE FOR ZOLADEX; STATED ONLY 10 ? X3 FOR 3 MONTHS IN ONE DOSE
     Route: 042
     Dates: start: 201304, end: 201307
  4. STRATTERA [Suspect]
     Indication: ATTENTION DEFICIT/HYPERACTIVITY DISORDER
     Dosage: DOSING DETAILS UNKNOWN
     Route: 048
     Dates: start: 2010, end: 201304
  5. ADDERAL [Concomitant]
     Indication: ATTENTION DEFICIT/HYPERACTIVITY DISORDER
     Dosage: DOSING DETAILS UNKNOWN
     Route: 048
     Dates: start: 201305, end: 201310
  6. ADDERAL [Concomitant]
     Dosage: DOSING REGIMEN UNKNOWN
     Route: 065
     Dates: start: 2013

REACTIONS (6)
  - Off label use [Not Recovered/Not Resolved]
  - Breast cancer [Recovered/Resolved]
  - Skin lesion [Not Recovered/Not Resolved]
  - Trichorrhexis [Not Recovered/Not Resolved]
  - Alopecia [Not Recovered/Not Resolved]
  - Drug interaction [Unknown]
